FAERS Safety Report 10478780 (Version 1)
Quarter: 2014Q3

REPORT INFORMATION
  Report Type: Spontaneous
  Country: US (occurrence: US)
  Receive Date: 20140926
  Receipt Date: 20140926
  Transmission Date: 20150326
  Serious: No
  Sender: FDA-Public Use
  Company Number: US-TEVA-511360USA

PATIENT
  Age: 21 Year
  Sex: Female
  Weight: 61.74 kg

DRUGS (1)
  1. PARAGARD T380A [Suspect]
     Active Substance: COPPER
     Indication: CONTRACEPTION
     Route: 015
     Dates: start: 20140805, end: 20140922

REACTIONS (6)
  - Menstruation delayed [Not Recovered/Not Resolved]
  - Discomfort [Not Recovered/Not Resolved]
  - Vaginal discharge [Not Recovered/Not Resolved]
  - Dysuria [Unknown]
  - Device expulsion [Recovered/Resolved]
  - Vaginal odour [Not Recovered/Not Resolved]

NARRATIVE: CASE EVENT DATE: 20140805
